FAERS Safety Report 6653200-4 (Version None)
Quarter: 2010Q1

REPORT INFORMATION
  Report Type: 
  Country: None (occurrence: None)
  Receive Date: 20100326
  Receipt Date: 20100320
  Transmission Date: 20100710
  Serious: Yes (Death, Hospitalization, Other)
  Sender: FDA-Public Use
  Company Number: JP-BAYER-200915204BYL

PATIENT
  Age: 64 Year
  Sex: Male

DRUGS (21)
  1. NEXAVAR [Suspect]
     Indication: HEPATIC NEOPLASM MALIGNANT
     Dosage: TOTAL DAILY DOSE: 400 MG  UNIT DOSE: 200 MG
     Route: 048
     Dates: start: 20091212, end: 20091217
  2. ALDACTONE [Concomitant]
     Route: 048
  3. URSO 250 [Concomitant]
     Route: 048
  4. UREPEARL [Concomitant]
     Route: 061
     Dates: start: 20091212
  5. GASMOTIN [Concomitant]
     Route: 048
  6. ZANTAC [Concomitant]
     Route: 048
  7. CEFMETAZON [Concomitant]
     Route: 042
  8. SOLYUGEN F [Concomitant]
     Route: 042
  9. NEOLAMIN 3B [Concomitant]
     Route: 042
  10. HYDROCORTISONE [Concomitant]
     Dosage: 200MG/4ML/DAY
     Route: 042
  11. PRIMPERAN INJ [Concomitant]
     Dosage: 10MG/2ML/DAY
     Route: 042
  12. LIVACT [Concomitant]
     Route: 048
  13. NEO-MINOPHAGEN C [Concomitant]
     Route: 042
  14. SOLDEM 3A [Concomitant]
     Route: 042
     Dates: start: 20091219, end: 20100102
  15. FRANDOL S [Concomitant]
     Dates: start: 20091219
  16. ADALAT [Concomitant]
     Route: 048
     Dates: start: 20091219
  17. LASIX [Concomitant]
     Route: 048
     Dates: start: 20091220
  18. OXYCONTIN [Concomitant]
     Route: 048
     Dates: start: 20091220
  19. FENTANYL CITRATE [Concomitant]
     Dates: start: 20091228
  20. SOLDACTONE [Concomitant]
     Route: 017
     Dates: start: 20091230
  21. MORPHINE HYDROCHLORIDE [Concomitant]
     Route: 017
     Dates: start: 20091231

REACTIONS (4)
  - GENERAL PHYSICAL HEALTH DETERIORATION [None]
  - HEPATIC FAILURE [None]
  - HEPATIC NEOPLASM MALIGNANT [None]
  - VOMITING [None]
